FAERS Safety Report 12133381 (Version 1)
Quarter: 2016Q1

REPORT INFORMATION
  Report Type: Spontaneous
  Country: BE (occurrence: BE)
  Receive Date: 20160301
  Receipt Date: 20160301
  Transmission Date: 20160526
  Serious: Yes (Other)
  Sender: FDA-Public Use
  Company Number: PHHY2016BE025726

PATIENT
  Sex: Male

DRUGS (1)
  1. RITALINE [Suspect]
     Active Substance: METHYLPHENIDATE HYDROCHLORIDE
     Indication: ATTENTION DEFICIT/HYPERACTIVITY DISORDER
     Dosage: UNK
     Route: 048
     Dates: start: 2014, end: 2015

REACTIONS (3)
  - Dystonia [Unknown]
  - Movement disorder [Unknown]
  - Tic [Unknown]

NARRATIVE: CASE EVENT DATE: 2014
